FAERS Safety Report 9348099 (Version 1)
Quarter: 2013Q2

REPORT INFORMATION
  Report Type: Spontaneous
  Country: US (occurrence: None)
  Receive Date: 20130612
  Receipt Date: 20130612
  Transmission Date: 20140414
  Serious: Yes (Hospitalization)
  Sender: FDA-Public Use
  Company Number: None

PATIENT
  Age: 5 Year
  Sex: Female
  Weight: 19.3 kg

DRUGS (1)
  1. MITOXANTRONE HYDROCHLORIDE [Suspect]

REACTIONS (2)
  - Left ventricular dysfunction [None]
  - Dilatation ventricular [None]
